FAERS Safety Report 18313681 (Version 1)
Quarter: 2020Q3

REPORT INFORMATION
  Report Type: Spontaneous
  Country: US (occurrence: US)
  Receive Date: 20200925
  Receipt Date: 20200925
  Transmission Date: 20201103
  Serious: No
  Sender: FDA-Public Use
  Company Number: US-PFIZER INC-2020369605

PATIENT
  Age: 59 Year
  Sex: Male
  Weight: 86.18 kg

DRUGS (1)
  1. METHOTREXATE SODIUM. [Suspect]
     Active Substance: METHOTREXATE SODIUM
     Indication: RHEUMATOID ARTHRITIS
     Dosage: UNK, WEEKLY (DOSE UNKNOWN, A SHOT FULL ONCE WEEKLY)

REACTIONS (1)
  - Drug ineffective [Not Recovered/Not Resolved]
